FAERS Safety Report 13489200 (Version 2)
Quarter: 2017Q2

REPORT INFORMATION
  Report Type: Spontaneous
  Country: IE (occurrence: IE)
  Receive Date: 20170427
  Receipt Date: 20170505
  Transmission Date: 20170830
  Serious: Yes (Other)
  Sender: FDA-Public Use
  Company Number: IE-PFIZER INC-2017177690

PATIENT
  Age: 7 Year
  Sex: Female

DRUGS (1)
  1. GENOTROPIN [Suspect]
     Active Substance: SOMATROPIN
     Dosage: 0.2 MG, DAILY
     Dates: start: 20010605

REACTIONS (11)
  - Clubbing [Unknown]
  - Cough [Unknown]
  - Dry skin [Unknown]
  - Pruritus [Unknown]
  - Heart rate irregular [Unknown]
  - Mood swings [Unknown]
  - Eye swelling [Unknown]
  - Foreign body sensation in eyes [Unknown]
  - Cyanosis [Unknown]
  - Heart rate increased [Unknown]
  - Respiratory rate increased [Unknown]
